FAERS Safety Report 19549032 (Version 1)
Quarter: 2021Q3

REPORT INFORMATION
  Report Type: Spontaneous
  Country: US (occurrence: US)
  Receive Date: 20210715
  Receipt Date: 20210715
  Transmission Date: 20211014
  Serious: No
  Sender: FDA-Public Use
  Company Number: None

PATIENT
  Age: 60 Year
  Sex: Male
  Weight: 122 kg

DRUGS (2)
  1. WARFARIN (WARFARIN NA (EXELAN) 5MG TAB) [Suspect]
     Active Substance: WARFARIN SODIUM
     Indication: VENOUS THROMBOSIS
     Dates: start: 20150813, end: 20210214
  2. WARFARIN (WARFARIN NA (EXELAN) 5MG TAB) [Suspect]
     Active Substance: WARFARIN SODIUM
     Dates: start: 20210215, end: 20210228

REACTIONS (1)
  - Haematemesis [None]

NARRATIVE: CASE EVENT DATE: 20210216
